FAERS Safety Report 13717515 (Version 1)
Quarter: 2017Q3

REPORT INFORMATION
  Report Type: Spontaneous
  Country: NL (occurrence: NL)
  Receive Date: 20170705
  Receipt Date: 20170705
  Transmission Date: 20171127
  Serious: Yes (Other)
  Sender: FDA-Public Use
  Company Number: NL-TEVA-784266ISR

PATIENT
  Age: 46 Year
  Sex: Female

DRUGS (4)
  1. ANDROCUR [Suspect]
     Active Substance: CYPROTERONE ACETATE
     Dosage: 100 MILLIGRAM DAILY;
  2. PROGYNOVA [Suspect]
     Active Substance: ESTRADIOL VALERATE
     Dosage: 100 MICROGRAM DAILY;
  3. ANDROCUR [Suspect]
     Active Substance: CYPROTERONE ACETATE
     Dosage: 10 MILLIGRAM DAILY;
  4. MENO IMPLANT 20 MG [Suspect]
     Active Substance: ESTRADIOL

REACTIONS (3)
  - Quadrantanopia [Unknown]
  - Meningioma [Unknown]
  - Visual acuity reduced [Unknown]
